FAERS Safety Report 7915082-X (Version None)
Quarter: 2011Q4

REPORT INFORMATION
  Report Type: 
  Country: None (occurrence: None)
  Receive Date: 20111115
  Receipt Date: 20111109
  Transmission Date: 20120403
  Serious: Yes (Hospitalization)
  Sender: FDA-Public Use
  Company Number: US-MERCK-1104USA02221

PATIENT
  Age: 52 Year
  Sex: Female

DRUGS (4)
  1. HORMONES (UNSPECIFIED) [Concomitant]
     Route: 065
     Dates: start: 19960101, end: 20110101
  2. CALCIUM (UNSPECIFIED) [Concomitant]
     Route: 065
  3. VITAMINS (UNSPECIFIED) [Concomitant]
     Route: 065
  4. FOSAMAX [Suspect]
     Indication: OSTEOPOROSIS
     Route: 048
     Dates: start: 19960101, end: 20100101

REACTIONS (13)
  - FEMUR FRACTURE [None]
  - HIP FRACTURE [None]
  - MUSCLE DISORDER [None]
  - LACERATION [None]
  - ASTHMA [None]
  - FALL [None]
  - SPINAL COMPRESSION FRACTURE [None]
  - VIRAL INFECTION [None]
  - HEAD INJURY [None]
  - BLOOD CHOLESTEROL INCREASED [None]
  - HYPERTENSION [None]
  - PNEUMONIA [None]
  - FRACTURE NONUNION [None]
